FAERS Safety Report 7935154-3 (Version None)
Quarter: 2011Q4

REPORT INFORMATION
  Report Type: 
  Country: None (occurrence: None)
  Receive Date: 20111122
  Receipt Date: 20111115
  Transmission Date: 20120403
  Serious: Yes (Death, Other)
  Sender: FDA-Public Use
  Company Number: PHHY2011CH100295

PATIENT
  Age: 61 Year
  Sex: Female

DRUGS (5)
  1. PREDNISONE TAB [Concomitant]
     Dosage: 7.5 MG, UNK
  2. MYCOPHENOLATE SODIUM [Concomitant]
  3. STEROIDS NOS [Concomitant]
  4. PREDNISONE TAB [Concomitant]
     Dosage: 10 MG, UNK
  5. CYCLOSPORINE [Suspect]
     Indication: LUNG TRANSPLANT

REACTIONS (12)
  - PULMONARY FUNCTION TEST DECREASED [None]
  - LUNG TRANSPLANT REJECTION [None]
  - BRONCHIAL METAPLASIA [None]
  - LUNG NEOPLASM [None]
  - FORCED EXPIRATORY VOLUME DECREASED [None]
  - WEIGHT DECREASED [None]
  - METASTASES TO BONE [None]
  - DEATH [None]
  - INFLAMMATION [None]
  - BRONCHITIS [None]
  - LARGE CELL CARCINOMA OF THE RESPIRATORY TRACT STAGE UNSPECIFIED [None]
  - LYMPHADENOPATHY [None]
